FAERS Safety Report 13243911 (Version 1)
Quarter: 2017Q1

REPORT INFORMATION
  Report Type: Spontaneous
  Country: US (occurrence: US)
  Receive Date: 20170216
  Receipt Date: 20170216
  Transmission Date: 20170428
  Serious: No
  Sender: FDA-Public Use
  Company Number: US-JAZZ-2016-US-003396

PATIENT
  Age: 81 Year
  Sex: Female

DRUGS (7)
  1. PRIALT [Suspect]
     Active Substance: ZICONOTIDE ACETATE
     Indication: SPINAL PAIN
  2. MORPHINE SULF [Suspect]
     Active Substance: MORPHINE SULFATE
     Indication: LUMBAR RADICULOPATHY
     Dosage: 0.426 MG, QH
     Route: 037
  3. PRIALT [Suspect]
     Active Substance: ZICONOTIDE ACETATE
     Indication: LUMBAR RADICULOPATHY
     Dosage: 0.025 ?G, QH
     Route: 037
  4. BUPIVACAINE. [Suspect]
     Active Substance: BUPIVACAINE
     Indication: SPINAL PAIN
  5. BUPIVACAINE. [Suspect]
     Active Substance: BUPIVACAINE
     Indication: LUMBAR RADICULOPATHY
     Dosage: 0.25 MG, QH
     Route: 037
  6. NEURONTIN [Concomitant]
     Active Substance: GABAPENTIN
  7. MORPHINE SULF [Suspect]
     Active Substance: MORPHINE SULFATE
     Indication: SPINAL PAIN

REACTIONS (2)
  - Unevaluable event [Unknown]
  - Granuloma [Unknown]

NARRATIVE: CASE EVENT DATE: 201601
